FAERS Safety Report 9560933 (Version 2)
Quarter: 2013Q4

REPORT INFORMATION
  Report Type: Spontaneous
  Country: CA (occurrence: CA)
  Receive Date: 20130927
  Receipt Date: 20131010
  Transmission Date: 20140711
  Serious: Yes (Hospitalization)
  Sender: FDA-Public Use
  Company Number: CA-AMGEN-CANSP2013066911

PATIENT
  Age: 69 Year
  Sex: Female
  Weight: 55.78 kg

DRUGS (5)
  1. PROLIA [Suspect]
     Indication: OSTEOPOROSIS POSTMENOPAUSAL
     Dosage: 60 MG, Q6MO
     Route: 058
     Dates: start: 20130422
  2. SYNTHROID [Concomitant]
     Dosage: 0.125 UNK, UNK
     Route: 048
  3. BISOPROLOL [Concomitant]
     Dosage: 5 MG, UNK
     Route: 048
  4. LASIX                              /00032601/ [Concomitant]
     Dosage: 20 MG, UNK
  5. ASA [Concomitant]
     Dosage: 8 MG, UNK

REACTIONS (2)
  - Femur fracture [Unknown]
  - Fall [Unknown]
